FAERS Safety Report 9443134 (Version 3)
Quarter: 2015Q1

REPORT INFORMATION
  Report Type: Spontaneous
  Country: US (occurrence: US)
  Receive Date: 20130806
  Receipt Date: 20150323
  Transmission Date: 20150721
  Serious: Yes (Hospitalization, Other)
  Sender: FDA-Public Use
  Company Number: US-BAYER-2013-094133

PATIENT
  Age: 24 Year
  Sex: Female
  Weight: 61.22 kg

DRUGS (2)
  1. MIRENA [Suspect]
     Active Substance: LEVONORGESTREL
     Indication: CONTRACEPTION
     Dosage: 20 MCG/24HR, CONT
     Route: 015
     Dates: start: 200510, end: 20110805
  2. LOESTRIN NOS [Concomitant]
     Active Substance: ETHINYL ESTRADIOL\NORETHINDRONE ACETATE
     Indication: GENITAL HAEMORRHAGE
     Dosage: UNK
     Dates: start: 2005

REACTIONS (8)
  - Medical device pain [None]
  - Abdominal pain lower [None]
  - Injury [None]
  - Device issue [None]
  - Uterine perforation [None]
  - Device dislocation [None]
  - Genital haemorrhage [None]
  - Device misuse [None]

NARRATIVE: CASE EVENT DATE: 200612
